FAERS Safety Report 10156669 (Version 4)
Quarter: 2015Q2

REPORT INFORMATION
  Report Type: Report from Study
  Country: CA (occurrence: CA)
  Receive Date: 20140507
  Receipt Date: 20150427
  Transmission Date: 20150821
  Serious: Yes (Death, Hospitalization)
  Sender: FDA-Public Use
  Company Number: CA-JNJFOC-20140503131

PATIENT
  Age: 40 Year
  Sex: Male

DRUGS (2)
  1. TYLENOL [Suspect]
     Active Substance: ACETAMINOPHEN
     Indication: PRODUCT USED FOR UNKNOWN INDICATION
     Dosage: 20 TYLENOL DAILY
     Route: 048
     Dates: start: 19950503, end: 19950527
  2. CHLORAL HYDRATE [Suspect]
     Active Substance: CHLORAL HYDRATE
     Indication: PRODUCT USED FOR UNKNOWN INDICATION
     Dosage: CHLORAL HYDRATE DAILY
     Route: 065
     Dates: end: 19950520

REACTIONS (6)
  - Emphysema [Fatal]
  - Toxic shock syndrome [Fatal]
  - Circulatory collapse [Fatal]
  - Pneumonia necrotising [Fatal]
  - Overdose [Fatal]
  - Acute respiratory failure [Fatal]
